FAERS Safety Report 25877848 (Version 1)
Quarter: 2025Q4

REPORT INFORMATION
  Report Type: Spontaneous
  Country: EU (occurrence: EU)
  Receive Date: 20251003
  Receipt Date: 20251003
  Transmission Date: 20260117
  Serious: Yes (Other)
  Sender: INTERCHEM
  Company Number: EU-HQ SPECIALTY-FR-2025INT000072

PATIENT

DRUGS (1)
  1. DEXMEDETOMIDINE HYDROCHLORIDE [Suspect]
     Active Substance: DEXMEDETOMIDINE HYDROCHLORIDE
     Indication: Product used for unknown indication
     Dosage: 40 MICROGRAM
     Route: 042
     Dates: start: 20250902, end: 20250902

REACTIONS (5)
  - Somnolence [Recovered/Resolved]
  - Atrioventricular block second degree [Recovering/Resolving]
  - Bradycardia [Recovering/Resolving]
  - Overdose [Recovered/Resolved]
  - Product administered to patient of inappropriate age [Recovered/Resolved]

NARRATIVE: CASE EVENT DATE: 20250902
